FAERS Safety Report 24613053 (Version 2)
Quarter: 2025Q1

REPORT INFORMATION
  Report Type: Spontaneous
  Country: TR (occurrence: TR)
  Receive Date: 20241113
  Receipt Date: 20250113
  Transmission Date: 20250408
  Serious: Yes (Hospitalization, Other)
  Sender: NOVARTIS
  Company Number: TR-002147023-NVSC2024TR215858

PATIENT
  Age: 0 Year
  Sex: Female

DRUGS (5)
  1. CYCLOSPORINE [Suspect]
     Active Substance: CYCLOSPORINE
     Indication: Product used for unknown indication
     Route: 065
  2. ILARIS [Suspect]
     Active Substance: CANAKINUMAB
     Indication: Product used for unknown indication
     Route: 065
  3. Prednol [Concomitant]
     Indication: Product used for unknown indication
     Route: 065
  4. ANAKINRA [Concomitant]
     Active Substance: ANAKINRA
     Indication: Product used for unknown indication
     Dosage: 5 MG/KG, QD
     Route: 065
     Dates: end: 202311
  5. DEXAMETHASONE [Concomitant]
     Active Substance: DEXAMETHASONE
     Indication: Product used for unknown indication
     Route: 065

REACTIONS (10)
  - Acute phase reaction [Unknown]
  - Serum ferritin increased [Unknown]
  - Pyrexia [Unknown]
  - Rash [Unknown]
  - Haemophagocytic lymphohistiocytosis [Unknown]
  - Hyperferritinaemia [Unknown]
  - Myalgia [Unknown]
  - Steroid dependence [Unknown]
  - Disease recurrence [Unknown]
  - Drug ineffective [Unknown]

NARRATIVE: CASE EVENT DATE: 20230701
